FAERS Safety Report 10112292 (Version 2)
Quarter: 2014Q2

REPORT INFORMATION
  Report Type: Spontaneous
  Country: CN (occurrence: CN)
  Receive Date: 20140425
  Receipt Date: 20140428
  Transmission Date: 20141212
  Serious: Yes (Hospitalization)
  Sender: FDA-Public Use
  Company Number: CN-ASTRAZENECA-2014SE27887

PATIENT
  Age: 89 Year
  Sex: Female

DRUGS (24)
  1. GLUTATHION + DIAMMONIUM GLYCYRRHIZINATE [Concomitant]
     Dosage: 1.2 G OF REDUCED GLUTATHION + 150 MG OF DIAMMONIUM GLYCYRRHIZINATE ONCE A DAY
     Route: 041
     Dates: start: 20120806, end: 20120820
  2. TEICOPLANIN [Concomitant]
     Route: 041
     Dates: start: 20120807, end: 20120812
  3. CREATINE PHOSPHATE SODIUM [Concomitant]
     Route: 041
     Dates: start: 20120807, end: 20120820
  4. DIGOXIN [Concomitant]
     Route: 048
     Dates: start: 20120813, end: 20120814
  5. DIGOXIN [Concomitant]
     Route: 048
     Dates: start: 20120815, end: 20120820
  6. HEPARIN CALCIUM [Concomitant]
     Route: 058
     Dates: start: 20120815, end: 20120820
  7. IRBESARTAN [Concomitant]
     Route: 048
     Dates: start: 20120817, end: 20120820
  8. ZYPREXA [Concomitant]
     Route: 048
     Dates: start: 20120817, end: 20120820
  9. MIDAZOLAM [Concomitant]
     Dosage: UNSCHEDULED DOSING 3 MG OF MIDAZOLAM
     Route: 042
  10. MEROPENEM [Suspect]
     Indication: RESPIRATORY TRACT INFECTION FUNGAL
     Route: 041
     Dates: start: 20120807, end: 20120816
  11. VORICONAZOLE [Suspect]
     Indication: RESPIRATORY TRACT INFECTION FUNGAL
     Route: 048
     Dates: start: 20120811, end: 20120816
  12. NITROPRUSSIDE [Suspect]
     Indication: HYPERTENSION
     Route: 042
     Dates: start: 20120806, end: 20120816
  13. SODIUM CHLORIDE SOLUTION [Concomitant]
     Dates: start: 20120803, end: 20120820
  14. BUDESONIDE INHALATION SUSPENSION [Concomitant]
     Route: 055
     Dates: start: 20120803, end: 20120820
  15. IPRATROPIUM BROMIDE [Concomitant]
     Route: 055
     Dates: start: 20120803, end: 20120820
  16. METHYLPREDNISOLONE SODIUM SUCCINATE [Concomitant]
     Route: 041
     Dates: start: 20120804, end: 20120812
  17. METHYLPREDNISOLONE SODIUM SUCCINATE [Concomitant]
     Route: 041
     Dates: start: 20120813, end: 20120820
  18. OMEPRAZOLE SODIUM FOR INJECTION (AOXIKANG) [Concomitant]
     Route: 041
     Dates: start: 20120804, end: 20120812
  19. AMBROXOL HYDROCHLORIDE [Concomitant]
     Route: 042
     Dates: start: 20120804, end: 20120805
  20. AMBROXOL HYDROCHLORIDE [Concomitant]
     Route: 042
     Dates: start: 20120806, end: 20120820
  21. CEFOPERAZONE SODIUM/TAZOBACTAM SODIUM [Concomitant]
     Dosage: CEFOPERAZONE SODIUM/TAZOBACTAM SODIUM, 2 G THREE TIMES A DAY
     Route: 041
     Dates: start: 20120804, end: 20120804
  22. CEFOPERAZONE SODIUM/TAZOBACTAM SODIUM [Concomitant]
     Dosage: CEFOPERAZONE SODIUM/TAZOBACTAM SODIUM, 3 G THREE TIMES A DAY
     Route: 041
     Dates: start: 20120817, end: 20120820
  23. DESLANOSIDE [Concomitant]
     Route: 042
     Dates: start: 20120806, end: 20120812
  24. DOXOPHYLLINE [Concomitant]
     Route: 042
     Dates: start: 20120806, end: 20120820

REACTIONS (1)
  - Mental disorder [Recovered/Resolved]
